FAERS Safety Report 20470524 (Version 1)
Quarter: 2022Q1

REPORT INFORMATION
  Report Type: Spontaneous
  Country: US (occurrence: US)
  Receive Date: 20220214
  Receipt Date: 20220214
  Transmission Date: 20220423
  Serious: No
  Sender: FDA-Public Use
  Company Number: US-BAUSCH-BL-2022-003463

PATIENT
  Sex: Female

DRUGS (2)
  1. TRETINOIN [Suspect]
     Active Substance: TRETINOIN
     Indication: Acne
     Route: 065
  2. TRETINOIN [Suspect]
     Active Substance: TRETINOIN
     Route: 065

REACTIONS (2)
  - Therapeutic product effect decreased [Unknown]
  - Product physical issue [Unknown]
